FAERS Safety Report 8354979-6 (Version None)
Quarter: 2012Q2

REPORT INFORMATION
  Report Type: 
  Country: None (occurrence: None)
  Receive Date: 20120511
  Receipt Date: 20120507
  Transmission Date: 20120825
  Serious: Yes (Life-Threatening, Other)
  Sender: FDA-Public Use
  Company Number: AU-JNJFOC-20120413191

PATIENT
  Sex: Female

DRUGS (8)
  1. CORTISONE ACETATE [Concomitant]
     Route: 065
  2. ADEFOVIR [Concomitant]
     Route: 065
  3. MICARDIS [Concomitant]
     Route: 065
  4. TOPAMAX [Suspect]
     Indication: MIGRAINE PROPHYLAXIS
     Dosage: IN THE MORNING
     Route: 048
  5. MAGMIN [Concomitant]
     Route: 065
  6. AN UNKNOWN MEDICATION [Concomitant]
     Route: 065
  7. ESTRADERM [Concomitant]
     Route: 065
  8. TOPAMAX [Suspect]
     Route: 048
     Dates: start: 20120418

REACTIONS (9)
  - PANIC ATTACK [None]
  - TEARFULNESS [None]
  - RETCHING [None]
  - SUICIDAL IDEATION [None]
  - HEADACHE [None]
  - FEELING ABNORMAL [None]
  - ABNORMAL BEHAVIOUR [None]
  - HALLUCINATION, VISUAL [None]
  - SOMNOLENCE [None]
